FAERS Safety Report 18200099 (Version 1)
Quarter: 2020Q3

REPORT INFORMATION
  Report Type: Spontaneous
  Country: CA (occurrence: CA)
  Receive Date: 20200827
  Receipt Date: 20200827
  Transmission Date: 20201103
  Serious: Yes (Hospitalization, Other)
  Sender: FDA-Public Use
  Company Number: CA-TEVA-2020-CA-1818201

PATIENT
  Age: 14 Year
  Sex: Female

DRUGS (8)
  1. ETOPOSIDE. [Suspect]
     Active Substance: ETOPOSIDE
     Indication: EWING^S SARCOMA
     Route: 065
  2. ONDANSETRON [Concomitant]
     Active Substance: ONDANSETRON
  3. IFOSFAMIDE FOR INJECTION, USP [Suspect]
     Active Substance: IFOSFAMIDE
     Indication: EWING^S SARCOMA
     Route: 065
  4. ACETAMINOPHEN. [Concomitant]
     Active Substance: ACETAMINOPHEN
  5. DIPHENHYDRAMINE. [Concomitant]
     Active Substance: DIPHENHYDRAMINE
  6. MESNA. [Concomitant]
     Active Substance: MESNA
  7. METOCLOPRAMIDE. [Concomitant]
     Active Substance: METOCLOPRAMIDE
  8. DEXAMETHASONE. [Concomitant]
     Active Substance: DEXAMETHASONE

REACTIONS (2)
  - Pyrexia [Recovered/Resolved]
  - Pancytopenia [Recovered/Resolved]
